FAERS Safety Report 9909668 (Version 1)
Quarter: 2014Q1

REPORT INFORMATION
  Report Type: Spontaneous
  Country: US (occurrence: None)
  Receive Date: 20140218
  Receipt Date: 20140218
  Transmission Date: 20141002
  Serious: Yes (Hospitalization, Disabling)
  Sender: FDA-Public Use
  Company Number: None

PATIENT
  Age: 52 Year
  Sex: Female
  Weight: 90.72 kg

DRUGS (5)
  1. FLUOXETINE [Suspect]
     Indication: DEPRESSION
     Route: 048
  2. ADVIL [Concomitant]
  3. TYLENOL [Concomitant]
  4. MECLAZINE [Concomitant]
  5. ZOFRAN [Concomitant]

REACTIONS (12)
  - Vertigo [None]
  - Hyperhidrosis [None]
  - Nausea [None]
  - Vomiting [None]
  - Eye disorder [None]
  - Hyperreflexia [None]
  - Muscle rigidity [None]
  - Gait disturbance [None]
  - Balance disorder [None]
  - Nystagmus [None]
  - Serotonin syndrome [None]
  - Ear injury [None]
